FAERS Safety Report 5113784-4 (Version None)
Quarter: 2006Q3

REPORT INFORMATION
  Report Type: 
  Country: None (occurrence: None)
  Receive Date: 20060925
  Receipt Date: 20060905
  Transmission Date: 20061208
  Serious: Yes (Other)
  Sender: FDA-Public Use
  Company Number: JP-NOVOPROD-256625

PATIENT
  Age: 14 Year
  Sex: Male
  Weight: 37 kg

DRUGS (1)
  1. NORDITROPIN SIMPLEXX [Suspect]
     Indication: GROWTH HORMONE DEFICIENCY
     Dosage: 1.1 MG, QD
     Dates: start: 20050712

REACTIONS (2)
  - HYPERTROPHIC CARDIOMYOPATHY [None]
  - WOLFF-PARKINSON-WHITE SYNDROME [None]
